FAERS Safety Report 14602362 (Version 2)
Quarter: 2018Q2

REPORT INFORMATION
  Report Type: Spontaneous
  Country: JP (occurrence: JP)
  Receive Date: 20180306
  Receipt Date: 20180504
  Transmission Date: 20180711
  Serious: Yes (Other)
  Sender: FDA-Public Use
  Company Number: JP-ROCHE-2085081

PATIENT
  Age: 74 Year
  Sex: Male
  Weight: 62 kg

DRUGS (4)
  1. PYDOXAL [Concomitant]
     Active Substance: PYRIDOXAL
     Dosage: DOSE INTERVAL UNCERTAINTY
     Route: 048
     Dates: start: 20171005, end: 20180106
  2. DECADRON [Concomitant]
     Active Substance: DEXAMETHASONE
     Dosage: DOSE INTERVAL UNCERTAINTY
     Route: 048
     Dates: start: 20171005, end: 20171230
  3. XELODA [Suspect]
     Active Substance: CAPECITABINE
     Indication: RECTAL CANCER
     Dosage: 2 WEEKS ADMINISTRATION FOLLOWED BY 1 WEEK REST
     Route: 048
     Dates: start: 20171005, end: 20180106
  4. OXALIPLATIN. [Suspect]
     Active Substance: OXALIPLATIN
     Indication: RECTAL CANCER
     Dosage: DAY1 ADMINISTERING?DOSE INTERVAL UNCERTAINTY
     Route: 041
     Dates: start: 20171005, end: 20171228

REACTIONS (1)
  - Rhabdomyolysis [Recovered/Resolved]

NARRATIVE: CASE EVENT DATE: 20180107
